FAERS Safety Report 9006906 (Version 1)
Quarter: 2013Q1

REPORT INFORMATION
  Report Type: Spontaneous
  Country: FR (occurrence: FR)
  Receive Date: 20130110
  Receipt Date: 20130110
  Transmission Date: 20140127
  Serious: Yes (Hospitalization)
  Sender: FDA-Public Use
  Company Number: FR-ASTRAZENECA-2013SE01032

PATIENT
  Age: 25447 Day
  Sex: Female

DRUGS (6)
  1. XEROQUEL [Suspect]
     Indication: BIPOLAR DISORDER
     Route: 048
     Dates: end: 20120417
  2. TERALITHE LP [Concomitant]
     Indication: BIPOLAR DISORDER
     Route: 048
  3. NOCTAMIDE [Concomitant]
     Indication: BIPOLAR DISORDER
     Route: 048
  4. INEXIUM [Concomitant]
     Indication: GASTRITIS
     Route: 048
  5. CRESTOR [Concomitant]
     Indication: HYPERCHOLESTEROLAEMIA
     Route: 048
  6. NEBILOX [Concomitant]
     Indication: HYPERTENSION
     Route: 048

REACTIONS (1)
  - Dermatitis bullous [Recovered/Resolved]
